FAERS Safety Report 5091480-X (Version None)
Quarter: 2006Q3

REPORT INFORMATION
  Report Type: 
  Country: None (occurrence: None)
  Receive Date: 20060829
  Receipt Date: 20060821
  Transmission Date: 20061208
  Serious: Yes (Hospitalization)
  Sender: FDA-Public Use
  Company Number: FR-GLAXOSMITHKLINE-B0435471A

PATIENT
  Age: 63 Year
  Sex: Female
  Weight: 57 kg

DRUGS (3)
  1. ZOPHREN [Suspect]
     Dosage: 8MG CYCLIC
     Route: 042
     Dates: start: 20060529, end: 20060724
  2. ENDOXAN [Suspect]
     Indication: OVARIAN CANCER
     Dosage: 650MG CYCLIC
     Route: 042
     Dates: start: 20060529, end: 20060727
  3. CARBOPLATIN [Suspect]
     Indication: OVARIAN CANCER
     Dosage: 300MG CYCLIC
     Route: 042
     Dates: start: 20060529, end: 20060727

REACTIONS (3)
  - ERYTHEMA [None]
  - PALMAR ERYTHEMA [None]
  - RASH [None]
